FAERS Safety Report 6693901-5 (Version None)
Quarter: 2010Q2

REPORT INFORMATION
  Report Type: 
  Country: None (occurrence: None)
  Receive Date: 20100423
  Receipt Date: 20100419
  Transmission Date: 20101027
  Serious: Yes (Death)
  Sender: FDA-Public Use
  Company Number: PHHY2010US25161

PATIENT
  Sex: Male

DRUGS (15)
  1. GLEEVEC [Suspect]
     Indication: CHRONIC MYELOID LEUKAEMIA
     Dosage: 400 MG/DAY
     Route: 048
     Dates: start: 20090301, end: 20100301
  2. PRANDIN [Concomitant]
  3. PROPRANOLOL [Concomitant]
  4. PREDNISONE [Concomitant]
  5. MORPHINE SULFATE [Concomitant]
  6. CITRUCEL [Concomitant]
  7. FEXOFENADINE HCL [Concomitant]
  8. DOCUSATE SODIUM [Concomitant]
  9. DILTIAZEM HCL [Concomitant]
  10. COLACE [Concomitant]
  11. CELEBREX [Concomitant]
  12. CALCIUM D [Concomitant]
  13. ECOTRIN [Concomitant]
  14. ALLOPURINOL [Concomitant]
  15. COUMADIN [Concomitant]

REACTIONS (1)
  - PNEUMONIA [None]
